FAERS Safety Report 8320648-1 (Version None)
Quarter: 2012Q2

REPORT INFORMATION
  Report Type: 
  Country: None (occurrence: None)
  Receive Date: 20120430
  Receipt Date: 20120221
  Transmission Date: 20120825
  Serious: Yes (Hospitalization, Other)
  Sender: FDA-Public Use
  Company Number: US-JNJFOC-20120409553

PATIENT
  Age: 69 Year
  Sex: Male
  Weight: 90 kg

DRUGS (19)
  1. IBUPROFEN [Suspect]
     Indication: PAIN
     Route: 048
     Dates: start: 20120211, end: 20120215
  2. ASPIRIN [Concomitant]
     Indication: CARDIOVASCULAR EVENT PROPHYLAXIS
     Route: 048
     Dates: start: 20010101
  3. CITALOPRAM [Concomitant]
     Indication: ANTIDEPRESSANT THERAPY
     Route: 048
     Dates: start: 20000101
  4. IBUPROFEN [Suspect]
     Route: 048
  5. HYDROCODONE [Suspect]
     Indication: PAIN
     Route: 048
     Dates: start: 20120211, end: 20120215
  6. STUDY MEDICATION [Suspect]
     Route: 042
     Dates: start: 20100526, end: 20100526
  7. STUDY MEDICATION [Suspect]
     Route: 042
  8. METAMUCIL-2 [Concomitant]
     Indication: DIARRHOEA
     Route: 048
     Dates: start: 20100331
  9. ARICEPT [Concomitant]
     Indication: DEMENTIA ALZHEIMER'S TYPE
     Route: 048
     Dates: start: 20110111
  10. NAMENDA [Concomitant]
     Indication: DEMENTIA ALZHEIMER'S TYPE
     Route: 048
     Dates: start: 20090413
  11. STUDY MEDICATION [Suspect]
     Indication: DEMENTIA ALZHEIMER'S TYPE
     Route: 042
     Dates: start: 20100304, end: 20100304
  12. STUDY MEDICATION [Suspect]
     Route: 042
     Dates: start: 20110302, end: 20110302
  13. STUDY MEDICATION [Suspect]
     Route: 042
     Dates: start: 20110524, end: 20110524
  14. STUDY MEDICATION [Suspect]
     Route: 042
     Dates: start: 20110822, end: 20110822
  15. STUDY MEDICATION [Suspect]
     Route: 042
     Dates: start: 20100819, end: 20100819
  16. STUDY MEDICATION [Suspect]
     Route: 042
     Dates: start: 20111121, end: 20111121
  17. CALCIUM [Concomitant]
     Indication: SUPPLEMENTATION THERAPY
     Route: 048
     Dates: start: 19950101
  18. STUDY MEDICATION [Suspect]
     Route: 042
     Dates: start: 20101122, end: 20101122
  19. DULCOLAX [Concomitant]
     Indication: CONSTIPATION
     Dosage: AS NEEDED
     Route: 048
     Dates: start: 20120215

REACTIONS (1)
  - THROMBOCYTOPENIA [None]
